FAERS Safety Report 19441303 (Version 3)
Quarter: 2021Q4

REPORT INFORMATION
  Report Type: Spontaneous
  Country: IT (occurrence: IT)
  Receive Date: 20210621
  Receipt Date: 20211103
  Transmission Date: 20220304
  Serious: Yes (Other)
  Sender: FDA-Public Use
  Company Number: IT-GLAXOSMITHKLINE-ITCH2021GSK035695

PATIENT
  Age: 38 Week
  Sex: Male
  Weight: 2.68 kg

DRUGS (2)
  1. ACETAMINOPHEN [Suspect]
     Active Substance: ACETAMINOPHEN
     Indication: Foetal exposure during pregnancy
     Dosage: UNK
     Route: 064
  2. ACETAMINOPHEN [Suspect]
     Active Substance: ACETAMINOPHEN
     Indication: Pyrexia

REACTIONS (6)
  - Neonatal respiratory distress syndrome [Unknown]
  - Gallbladder enlargement [Unknown]
  - Porcelain gallbladder [Unknown]
  - Metabolic acidosis [Unknown]
  - Intestinal calcification [Unknown]
  - Foetal exposure during pregnancy [Unknown]
